FAERS Safety Report 6116903-6 (Version None)
Quarter: 2009Q1

REPORT INFORMATION
  Report Type: 
  Country: None (occurrence: None)
  Receive Date: 20090314
  Receipt Date: 20081229
  Transmission Date: 20090719
  Serious: No
  Sender: FDA-Public Use
  Company Number: US-ABBOTT-08P-163-0495394-00

PATIENT
  Sex: Female
  Weight: 81.72 kg

DRUGS (3)
  1. HUMIRA [Suspect]
     Indication: PSORIASIS
     Dates: start: 20081101
  2. HUMIRA [Suspect]
     Dates: end: 20081215
  3. GLUCOPHAGE AND METFORMIN [Concomitant]
     Indication: DIABETES MELLITUS
     Dosage: 5.500MG
     Dates: start: 20010101

REACTIONS (4)
  - LYMPHADENOPATHY [None]
  - OEDEMA PERIPHERAL [None]
  - PAIN OF SKIN [None]
  - RASH PUSTULAR [None]
